FAERS Safety Report 8914595 (Version 2)
Quarter: 2012Q4

REPORT INFORMATION
  Report Type: 
  Country: BR (occurrence: BR)
  Receive Date: 20121119
  Receipt Date: 20121213
  Transmission Date: 20130627
  Serious: Yes (Other)
  Sender: FDA-Public Use
  Company Number: BR-NOVOPROD-363802

PATIENT
  Sex: Female
  Weight: 104 kg

DRUGS (6)
  1. VICTOZA [Suspect]
     Indication: DIABETES MELLITUS
     Dosage: Unknown
     Route: 065
     Dates: start: 201205, end: 20121107
  2. VICTOZA [Suspect]
     Indication: OBESITY
  3. METFORMIN [Concomitant]
     Indication: TYPE 2 DIABETES MELLITUS
     Dosage: 3 Tab, qd
  4. DIOVAN [Concomitant]
     Indication: HYPERTENSION
     Dosage: 320 mg, qd
  5. ZYLORIC [Concomitant]
     Indication: BLOOD URIC ACID
     Dosage: 300 mg, qd
  6. DIAMICRON [Concomitant]
     Indication: TYPE 2 DIABETES MELLITUS
     Dosage: 30 mg, qd

REACTIONS (1)
  - Thyroid neoplasm [Unknown]
